FAERS Safety Report 19576328 (Version 1)
Quarter: 2021Q3

REPORT INFORMATION
  Report Type: Spontaneous
  Country: US (occurrence: US)
  Receive Date: 20210718
  Receipt Date: 20210718
  Transmission Date: 20211014
  Serious: Yes (Life-Threatening, Hospitalization, Disabling, Other)
  Sender: FDA-Public Use
  Company Number: None

PATIENT
  Age: 31 Year
  Sex: Female
  Weight: 8 kg

DRUGS (1)
  1. NEUTROGENA ULTRA SHEER BODY MIST SUNSCREEN BROAD SPECTRUM SPF 45 (AVO\HOM\OCTI\OCTO) [Suspect]
     Active Substance: AVOBENZONE\HOMOSALATE\OCTISALATE\OCTOCRYLENE
     Indication: PROPHYLAXIS AGAINST SOLAR RADIATION
     Dosage: ?OTHER STRENGTH:8.0 OZ (226 G);?QUANTITY:1 SPRAY(S);?OTHER FREQUENCY:AT LEASEVERY 2 HRS;?
     Route: 061
     Dates: start: 20210601, end: 20210718

REACTIONS (7)
  - Eye irritation [None]
  - Acute kidney injury [None]
  - Ovarian cancer [None]
  - Amenorrhoea [None]
  - Skin discolouration [None]
  - Skin burning sensation [None]
  - Vomiting [None]

NARRATIVE: CASE EVENT DATE: 20210620
